FAERS Safety Report 11781371 (Version 1)
Quarter: 2015Q4

REPORT INFORMATION
  Report Type: Spontaneous
  Country: US (occurrence: US)
  Receive Date: 20151126
  Receipt Date: 20151126
  Transmission Date: 20160305
  Serious: No
  Sender: FDA-Public Use
  Company Number: US-JNJFOC-20151117158

PATIENT
  Age: 78 Year
  Sex: Female
  Weight: 60.78 kg

DRUGS (2)
  1. WOMENS ROGAINE UNSCENTED [Suspect]
     Active Substance: MINOXIDIL
     Route: 061
  2. WOMENS ROGAINE UNSCENTED [Suspect]
     Active Substance: MINOXIDIL
     Indication: ALOPECIA
     Dosage: 1/2 CAP, 5 DAYS A WEEK
     Route: 061
     Dates: end: 20151114

REACTIONS (3)
  - Alopecia [Not Recovered/Not Resolved]
  - Product formulation issue [Unknown]
  - Inappropriate schedule of drug administration [Not Recovered/Not Resolved]
